FAERS Safety Report 9258642 (Version 2)
Quarter: 2013Q2

REPORT INFORMATION
  Report Type: Spontaneous
  Country: DE (occurrence: DE)
  Receive Date: 20130426
  Receipt Date: 20130605
  Transmission Date: 20140414
  Serious: Yes (Other)
  Sender: FDA-Public Use
  Company Number: DE-CELGENEUS-062-21880-13042956

PATIENT
  Age: 73 Year
  Sex: Female
  Weight: 63 kg

DRUGS (5)
  1. REVLIMID [Suspect]
     Indication: PLASMA CELL MYELOMA
     Route: 048
     Dates: start: 20130208, end: 20130214
  2. DEXAMETHASONE [Concomitant]
     Indication: PLASMA CELL MYELOMA
     Dosage: 5.7143 MILLIGRAM
     Route: 048
     Dates: start: 20130208, end: 20130414
  3. PANTOZOL [Concomitant]
     Indication: PLASMA CELL MYELOMA
     Dosage: 40 MILLIGRAM
     Route: 048
     Dates: start: 20130208
  4. GABAPENTIN [Concomitant]
     Indication: NEUROPATHY PERIPHERAL
     Dosage: 125 MILLIGRAM
     Route: 065
     Dates: start: 2010
  5. ZOLEDRONIC ACID [Concomitant]
     Indication: PLASMA CELL MYELOMA
     Dosage: .1333 MILLIGRAM
     Route: 048
     Dates: start: 20130208

REACTIONS (1)
  - Hallucination, visual [Recovered/Resolved]
